FAERS Safety Report 6492694-4 (Version None)
Quarter: 2009Q4

REPORT INFORMATION
  Report Type: 
  Country: None (occurrence: None)
  Receive Date: 20091211
  Receipt Date: 20091211
  Transmission Date: 20100525
  Serious: No
  Sender: FDA-Public Use
  Company Number: None

PATIENT
  Age: 43 Year
  Sex: Female
  Weight: 52.4 kg

DRUGS (1)
  1. BACTRIM [Suspect]
     Dosage: 260MG Q8HOURS IV
     Route: 042

REACTIONS (2)
  - EPISTAXIS [None]
  - HEADACHE [None]
